FAERS Safety Report 5907162-5 (Version None)
Quarter: 2008Q4

REPORT INFORMATION
  Report Type: 
  Country: None (occurrence: None)
  Receive Date: 20081003
  Receipt Date: 20080925
  Transmission Date: 20090506
  Serious: Yes (Other)
  Sender: FDA-Public Use
  Company Number: US-JNJFOC-20080906567

PATIENT
  Sex: Male

DRUGS (4)
  1. RISPERDAL [Suspect]
     Indication: SCHIZOPHRENIA, PARANOID TYPE
     Route: 048
  2. RISPERDAL CONSTA [Suspect]
     Indication: SCHIZOPHRENIA, PARANOID TYPE
     Route: 030
  3. NEXIUM [Concomitant]
     Dosage: AS NEEDED
     Route: 048
  4. SINEQUAN [Concomitant]
     Indication: SLEEP DISORDER
     Route: 048

REACTIONS (4)
  - AGGRESSION [None]
  - ANGER [None]
  - NAUSEA [None]
  - SUICIDAL IDEATION [None]
